FAERS Safety Report 23048039 (Version 1)
Quarter: 2023Q4

REPORT INFORMATION
  Report Type: Spontaneous
  Country: US (occurrence: US)
  Receive Date: 20231010
  Receipt Date: 20231010
  Transmission Date: 20240110
  Serious: No
  Sender: FDA-Public Use
  Company Number: US-SUN PHARMACEUTICAL INDUSTRIES LTD-2022R1-370221

PATIENT
  Sex: Female

DRUGS (2)
  1. CEQUA [Interacting]
     Active Substance: CYCLOSPORINE
     Indication: Product used for unknown indication
     Dosage: UNK
     Route: 065
  2. FELODIPINE [Interacting]
     Active Substance: FELODIPINE
     Indication: Hypotension
     Dosage: UNK
     Route: 065

REACTIONS (1)
  - Drug interaction [Unknown]
